FAERS Safety Report 8449894-3 (Version None)
Quarter: 2012Q2

REPORT INFORMATION
  Report Type: 
  Country: None (occurrence: None)
  Receive Date: 20120620
  Receipt Date: 20120612
  Transmission Date: 20120825
  Serious: Yes (Hospitalization)
  Sender: FDA-Public Use
  Company Number: PHHY2012DE001652

PATIENT
  Age: 48 Year
  Sex: Male
  Weight: 93.5 kg

DRUGS (13)
  1. MOXONIDINE [Concomitant]
     Indication: HYPERTENSION
     Dosage: 0.4 MG, BID
  2. ARANESP [Concomitant]
     Indication: NEPHROGENIC ANAEMIA
     Dosage: 40 UG, ONCE PER WEEK
     Route: 058
  3. VALCYTE [Concomitant]
     Indication: INFECTION PROPHYLAXIS
     Dosage: 450 MG, ON MONDAY AND ON THURSDAY
     Route: 048
     Dates: start: 20110123
  4. FUROSEMIDE [Concomitant]
     Indication: POLYURIA
     Dosage: 80 MG, QD
     Route: 048
     Dates: start: 20110102
  5. MYCOPHENOLIC ACID [Suspect]
     Indication: PROPHYLAXIS AGAINST TRANSPLANT REJECTION
     Dosage: 1440 MG, UNK
     Route: 048
     Dates: start: 20110102
  6. PREDNISONE TAB [Suspect]
     Indication: PROPHYLAXIS AGAINST TRANSPLANT REJECTION
     Dosage: 85 MG, UNK
     Route: 048
     Dates: start: 20110102
  7. SANDIMMUNE [Suspect]
     Indication: PROPHYLAXIS AGAINST TRANSPLANT REJECTION
     Dosage: 550 MG, UNK
     Route: 048
     Dates: start: 20110102
  8. METOPROLOL TARTRATE [Concomitant]
     Indication: HYPERTENSION
     Dosage: 95 MG, BID
     Route: 048
  9. FOSAMAX [Concomitant]
     Indication: OSTEOPOROSIS PROPHYLAXIS
     Dosage: 70 MG, ONCE WEEKLY
     Route: 048
     Dates: start: 20110102
  10. CLONIDINE [Concomitant]
     Indication: HYPERTENSION
     Dosage: 250 MG, BID
     Route: 048
     Dates: start: 20120102
  11. FELODIPINE [Concomitant]
     Indication: HYPERTENSION
     Dosage: 25 MG, QD
     Route: 048
  12. PANTOPRAZOLE [Concomitant]
     Indication: ULCER
     Dosage: 70 MG, ONCE WEEKLY
     Route: 048
     Dates: start: 20110102
  13. FOLSAN [Concomitant]
     Indication: FOLATE DEFICIENCY
     Dosage: 5 MG, UNK
     Route: 048

REACTIONS (4)
  - STAPHYLOCOCCAL SEPSIS [None]
  - COMPLICATIONS OF TRANSPLANTED KIDNEY [None]
  - GRAFT HAEMORRHAGE [None]
  - RENAL ANEURYSM [None]
